FAERS Safety Report 12296114 (Version 1)
Quarter: 2016Q2

REPORT INFORMATION
  Report Type: Spontaneous
  Country: DK (occurrence: FR)
  Receive Date: 20160422
  Receipt Date: 20160422
  Transmission Date: 20160815
  Serious: Yes (Hospitalization)
  Sender: FDA-Public Use
  Company Number: FR-FRI-1000084003

PATIENT
  Age: 63 Year
  Sex: Male

DRUGS (4)
  1. ESCITALOPRAM [Suspect]
     Active Substance: ESCITALOPRAM OXALATE
     Indication: PRODUCT USED FOR UNKNOWN INDICATION
     Dosage: 10 MG
     Route: 048
     Dates: end: 20151007
  2. TRAMADOL. [Suspect]
     Active Substance: TRAMADOL
     Indication: BACK PAIN
     Route: 048
     Dates: start: 201510, end: 20151007
  3. IPERTEN [Concomitant]
     Active Substance: MANIDIPINE
  4. LAMICTAL [Concomitant]
     Active Substance: LAMOTRIGINE

REACTIONS (2)
  - Seizure [Recovered/Resolved]
  - Hyponatraemia [Recovered/Resolved]

NARRATIVE: CASE EVENT DATE: 20151007
